FAERS Safety Report 9572104 (Version 1)
Quarter: 2013Q4

REPORT INFORMATION
  Report Type: Spontaneous
  Country: DE (occurrence: DE)
  Receive Date: 20131001
  Receipt Date: 20131001
  Transmission Date: 20140711
  Serious: Yes (Other)
  Sender: FDA-Public Use
  Company Number: DE-ASTRAZENECA-2013SE71301

PATIENT
  Sex: Male

DRUGS (1)
  1. ATACAND [Suspect]
     Indication: HYPERTENSION
     Route: 048
     Dates: start: 2010

REACTIONS (3)
  - Blood pressure increased [Unknown]
  - Pollakiuria [Unknown]
  - Drug ineffective [Unknown]
